FAERS Safety Report 24186426 (Version 2)
Quarter: 2024Q4

REPORT INFORMATION
  Report Type: Spontaneous
  Country: US (occurrence: US)
  Receive Date: 20240808
  Receipt Date: 20241119
  Transmission Date: 20250114
  Serious: No
  Sender: NOVARTIS
  Company Number: US-002147023-NVSC2024US160621

PATIENT
  Sex: Female

DRUGS (1)
  1. COSENTYX [Suspect]
     Active Substance: SECUKINUMAB
     Indication: Psoriatic arthropathy
     Dosage: 300 MG (ONCE A WEEK FOR 4 WEEKS AND THEN ONCE A MONTH THEREAFTER)
     Route: 058
     Dates: start: 20240727

REACTIONS (4)
  - Incorrect dose administered [Unknown]
  - Product leakage [Unknown]
  - Injection site bruising [Unknown]
  - Accidental exposure to product [Unknown]
